FAERS Safety Report 15682003 (Version 1)
Quarter: 2018Q4

REPORT INFORMATION
  Report Type: Spontaneous
  Country: US (occurrence: US)
  Receive Date: 20181203
  Receipt Date: 20181203
  Transmission Date: 20190205
  Serious: Yes (Death)
  Sender: FDA-Public Use
  Company Number: None

PATIENT
  Age: 73 Year
  Sex: Female
  Weight: 117 kg

DRUGS (10)
  1. VITAMIN B12 [Concomitant]
     Active Substance: CYANOCOBALAMIN
  2. INVOKANA [Suspect]
     Active Substance: CANAGLIFLOZIN
     Indication: DIABETES MELLITUS
     Dosage: ?          QUANTITY:90 CAPSULE(S);?
     Route: 048
     Dates: start: 20180714, end: 20181119
  3. VID D [Concomitant]
  4. VITAMIN E [Concomitant]
     Active Substance: .ALPHA.-TOCOPHEROL
  5. METFORMIN [Concomitant]
     Active Substance: METFORMIN HYDROCHLORIDE
  6. INSULIN [Concomitant]
     Active Substance: INSULIN NOS
  7. FISH OIL [Concomitant]
     Active Substance: FISH OIL
  8. VITAMIN C [Concomitant]
     Active Substance: ASCORBIC ACID
  9. ALLOPURINOL. [Concomitant]
     Active Substance: ALLOPURINOL
  10. MULTIVITE [Concomitant]
     Active Substance: VITAMINS

REACTIONS (10)
  - Asthenia [None]
  - Hypersomnia [None]
  - Weight decreased [None]
  - Amnesia [None]
  - Fatigue [None]
  - Lactic acidosis [None]
  - Impaired healing [None]
  - Drug interaction [None]
  - Skin ulcer [None]
  - Dysgeusia [None]

NARRATIVE: CASE EVENT DATE: 20181119
